FAERS Safety Report 15322927 (Version 2)
Quarter: 2018Q3

REPORT INFORMATION
  Report Type: Spontaneous
  Country: US (occurrence: US)
  Receive Date: 20180827
  Receipt Date: 20180926
  Transmission Date: 20181010
  Serious: No
  Sender: FDA-Public Use
  Company Number: US-ASTRAZENECA-2018SF00994

PATIENT
  Age: 863 Month
  Sex: Female
  Weight: 63 kg

DRUGS (6)
  1. SPIRIVA [Concomitant]
     Active Substance: TIOTROPIUM BROMIDE MONOHYDRATE
  2. SYMBICORT [Suspect]
     Active Substance: BUDESONIDE\FORMOTEROL FUMARATE DIHYDRATE
     Indication: ASTHMA
     Dosage: 160/4.5 MCG, USED 3 PUFFS IN THE MORNING
     Route: 055
     Dates: start: 20180802
  3. VITAMIN C [Concomitant]
     Active Substance: ASCORBIC ACID
  4. SYMBICORT [Suspect]
     Active Substance: BUDESONIDE\FORMOTEROL FUMARATE DIHYDRATE
     Indication: ASTHMA
     Dosage: 160/4.5 MCG, TWO INHALATIONS TWO TIMES A DAY
     Route: 055
     Dates: start: 2015
  5. SYMBICORT [Suspect]
     Active Substance: BUDESONIDE\FORMOTEROL FUMARATE DIHYDRATE
     Indication: CHRONIC OBSTRUCTIVE PULMONARY DISEASE
     Dosage: 160/4.5 MCG, TWO INHALATIONS TWO TIMES A DAY
     Route: 055
     Dates: start: 2015
  6. SYMBICORT [Suspect]
     Active Substance: BUDESONIDE\FORMOTEROL FUMARATE DIHYDRATE
     Indication: CHRONIC OBSTRUCTIVE PULMONARY DISEASE
     Dosage: 160/4.5 MCG, USED 3 PUFFS IN THE MORNING
     Route: 055
     Dates: start: 20180802

REACTIONS (7)
  - Body height decreased [Unknown]
  - Dyspnoea [Unknown]
  - Intentional device misuse [Unknown]
  - Device malfunction [Unknown]
  - Asthma [Unknown]
  - Intentional product misuse [Unknown]
  - Device failure [Unknown]

NARRATIVE: CASE EVENT DATE: 201803
